FAERS Safety Report 24710908 (Version 1)
Quarter: 2024Q4

REPORT INFORMATION
  Report Type: Spontaneous
  Country: None (occurrence: None)
  Receive Date: 20241209
  Receipt Date: 20241209
  Transmission Date: 20250115
  Serious: Yes (Other)
  Sender: UNICHEM
  Company Number: Unichem Pharmaceuticals (USA) Inc-UCM202411-001610

PATIENT
  Age: 64 Year
  Sex: Female

DRUGS (5)
  1. METRONIDAZOLE [Suspect]
     Active Substance: METRONIDAZOLE
     Indication: Liver abscess
     Dosage: UNKNOWN
     Route: 042
  2. METRONIDAZOLE [Suspect]
     Active Substance: METRONIDAZOLE
     Dosage: UNKNOWN
     Route: 048
  3. CEFTRIAXONE [Suspect]
     Active Substance: CEFTRIAXONE
     Indication: Liver abscess
     Dosage: UNKNOWN
     Route: 042
  4. DAPSONE [Concomitant]
     Active Substance: DAPSONE
     Indication: Hypersensitivity vasculitis
     Dosage: UNKNOWN
     Route: 048
  5. METHYLPREDNISOLONE [Concomitant]
     Active Substance: METHYLPREDNISOLONE
     Indication: Hypersensitivity vasculitis
     Dosage: UNKNOWN
     Route: 048

REACTIONS (2)
  - IgA nephropathy [Recovered/Resolved]
  - Linear IgA disease [Recovered/Resolved]
